FAERS Safety Report 10467445 (Version 1)
Quarter: 2014Q3

REPORT INFORMATION
  Report Type: Spontaneous
  Country: FR (occurrence: FR)
  Receive Date: 20140922
  Receipt Date: 20140922
  Transmission Date: 20150326
  Serious: Yes (Death, Other)
  Sender: FDA-Public Use
  Company Number: FR-BRISTOL-MYERS SQUIBB COMPANY-21414438

PATIENT
  Age: 87 Year
  Sex: Female

DRUGS (2)
  1. PROFENID [Interacting]
     Active Substance: KETOPROFEN
     Dates: end: 20140819
  2. COUMADIN [Suspect]
     Active Substance: WARFARIN SODIUM
     Indication: ATRIAL FIBRILLATION
     Route: 048
     Dates: end: 20140819

REACTIONS (3)
  - Death [Fatal]
  - Drug interaction [Unknown]
  - Cerebral haematoma [Fatal]

NARRATIVE: CASE EVENT DATE: 2014
